FAERS Safety Report 19298865 (Version 1)
Quarter: 2021Q2

REPORT INFORMATION
  Report Type: Spontaneous
  Country: US (occurrence: US)
  Receive Date: 20210525
  Receipt Date: 20210525
  Transmission Date: 20210717
  Serious: No
  Sender: FDA-Public Use
  Company Number: US-SA-2021SA159852

PATIENT
  Age: 19 Year
  Sex: Female

DRUGS (2)
  1. DUPIXENT [Suspect]
     Active Substance: DUPILUMAB
     Indication: EPIDERMOLYSIS BULLOSA
  2. DUPIXENT [Suspect]
     Active Substance: DUPILUMAB
     Indication: CUTANEOUS T-CELL LYMPHOMA
     Dosage: 300 MG, QOW
     Dates: start: 202105

REACTIONS (1)
  - Off label use [Unknown]
